FAERS Safety Report 12068750 (Version 2)
Quarter: 2016Q1

REPORT INFORMATION
  Report Type: Report from Study
  Country: DE (occurrence: DE)
  Receive Date: 20160211
  Receipt Date: 20160311
  Transmission Date: 20160526
  Serious: Yes (Other)
  Sender: FDA-Public Use
  Company Number: DE-BAYER-2016-021435

PATIENT
  Age: 46 Year
  Sex: Male

DRUGS (3)
  1. ACETYLSALICYLIC ACID [Suspect]
     Active Substance: ASPIRIN
  2. MENTHA X PIPERITA [Suspect]
     Active Substance: HERBALS
  3. VITAMIN C [Suspect]
     Active Substance: ASCORBIC ACID

REACTIONS (1)
  - Drug-induced liver injury [None]
